FAERS Safety Report 6460086-X (Version None)
Quarter: 2009Q4

REPORT INFORMATION
  Report Type: 
  Country: None (occurrence: None)
  Receive Date: 20091129
  Receipt Date: 20091124
  Transmission Date: 20100525
  Serious: Yes (Death, Other)
  Sender: FDA-Public Use
  Company Number: PHHY2009IT40960

PATIENT
  Sex: Female

DRUGS (4)
  1. ZOMETA [Suspect]
     Indication: METASTASES TO BREAST
     Dosage: 4 MG MONTHLY
     Route: 042
     Dates: start: 20040601, end: 20060228
  2. TAMOXIFEN CITRATE [Concomitant]
  3. GABAPENTIN [Concomitant]
  4. DELTACORTENE [Concomitant]
     Dosage: 25 MG
     Route: 048

REACTIONS (3)
  - DEATH [None]
  - ORAL SURGERY [None]
  - OSTEONECROSIS [None]
